FAERS Safety Report 15276332 (Version 1)
Quarter: 2018Q3

REPORT INFORMATION
  Report Type: Spontaneous
  Country: US (occurrence: US)
  Receive Date: 20180728
  Receipt Date: 20180728
  Transmission Date: 20181010
  Serious: Yes (Death)
  Sender: FDA-Public Use
  Company Number: None

PATIENT
  Age: 60 Year
  Sex: Male
  Weight: 88.3 kg

DRUGS (1)
  1. APIXABAN [Suspect]
     Active Substance: APIXABAN
     Indication: DEEP VEIN THROMBOSIS
     Route: 048

REACTIONS (5)
  - Dyspnoea [None]
  - Subdural haematoma [None]
  - Haemorrhage [None]
  - Unresponsive to stimuli [None]
  - Cerebral haemorrhage [None]

NARRATIVE: CASE EVENT DATE: 20180523
